FAERS Safety Report 25651771 (Version 1)
Quarter: 2025Q3

REPORT INFORMATION
  Report Type: Spontaneous
  Country: US (occurrence: US)
  Receive Date: 20250806
  Receipt Date: 20250806
  Transmission Date: 20251021
  Serious: No
  Sender: EVOKE PHARMA
  Company Number: US-EVOKE PHARMA, INC.-2025EVO000010

PATIENT

DRUGS (3)
  1. GIMOTI [Suspect]
     Active Substance: METOCLOPRAMIDE HYDROCHLORIDE
     Indication: Impaired gastric emptying
     Dosage: 15 MILLIGRAM, QID
     Route: 065
     Dates: start: 20250201
  2. GIMOTI [Suspect]
     Active Substance: METOCLOPRAMIDE HYDROCHLORIDE
     Dosage: 15 MILLIGRAM, BID
     Route: 065
     Dates: start: 202502
  3. ZYRTEC [Concomitant]
     Active Substance: CETIRIZINE HYDROCHLORIDE
     Indication: Product used for unknown indication

REACTIONS (3)
  - Restlessness [Not Recovered/Not Resolved]
  - Tremor [Not Recovered/Not Resolved]
  - Agitation [Not Recovered/Not Resolved]

NARRATIVE: CASE EVENT DATE: 20250212
